FAERS Safety Report 5156326-X (Version None)
Quarter: 2006Q4

REPORT INFORMATION
  Report Type: 
  Country: None (occurrence: None)
  Receive Date: 20061122
  Receipt Date: 20061024
  Transmission Date: 20070319
  Serious: Yes (Hospitalization)
  Sender: FDA-Public Use
  Company Number: JP-JPN-A200604461

PATIENT
  Age: 89 Year
  Sex: Female
  Weight: 43 kg

DRUGS (11)
  1. VALTREX [Suspect]
     Indication: HERPES ZOSTER
     Dosage: 1000MG THREE TIMES PER DAY
     Route: 048
     Dates: start: 20061017, end: 20061020
  2. LOXONIN [Suspect]
     Indication: HERPES ZOSTER
     Route: 048
     Dates: start: 20061017, end: 20061020
  3. MUCOSTA [Concomitant]
     Indication: HERPES ZOSTER
     Route: 048
     Dates: start: 20061017, end: 20061020
  4. THYRADIN [Concomitant]
     Indication: HYPOTHYROIDISM
     Dosage: 50MCG PER DAY
     Route: 048
     Dates: start: 20060413
  5. JUVELA N [Concomitant]
     Indication: HYPERTENSION
     Dosage: 600MG PER DAY
     Route: 048
     Dates: start: 20060727
  6. DIOVAN [Concomitant]
     Indication: HYPERTENSION
     Dosage: 80MG PER DAY
     Route: 048
     Dates: start: 20060413
  7. ARTIST [Concomitant]
     Indication: HYPERTENSION
     Dosage: 10MG PER DAY
     Route: 048
     Dates: start: 20060518
  8. ADALAT [Concomitant]
     Indication: HYPERTENSION
     Dosage: 20MG PER DAY
     Route: 048
     Dates: start: 20060413
  9. CARDENALIN [Concomitant]
     Indication: HYPERTENSION
     Dosage: 4MG PER DAY
     Route: 048
     Dates: start: 20060413
  10. ADOFEED [Concomitant]
     Route: 062
  11. UNKNOWN DRUG [Concomitant]
     Route: 062

REACTIONS (5)
  - ANOREXIA [None]
  - CEREBELLAR ATAXIA [None]
  - DIZZINESS POSTURAL [None]
  - ILL-DEFINED DISORDER [None]
  - RENAL FAILURE ACUTE [None]
